FAERS Safety Report 18755724 (Version 2)
Quarter: 2021Q2

REPORT INFORMATION
  Report Type: Spontaneous
  Country: IT (occurrence: IT)
  Receive Date: 20210119
  Receipt Date: 20210419
  Transmission Date: 20210717
  Serious: Yes (Death, Hospitalization)
  Sender: FDA-Public Use
  Company Number: IT-TEVA-2021-IT-1869546

PATIENT
  Age: 74 Year
  Sex: Male

DRUGS (1)
  1. CLARITHROMYCIN. [Suspect]
     Active Substance: CLARITHROMYCIN
     Indication: ACUTE RESPIRATORY FAILURE
     Route: 065

REACTIONS (3)
  - Clostridium difficile infection [Fatal]
  - Shock [Fatal]
  - Megacolon [Fatal]
